FAERS Safety Report 19111392 (Version 1)
Quarter: 2021Q2

REPORT INFORMATION
  Report Type: Spontaneous
  Country: US (occurrence: US)
  Receive Date: 20210408
  Receipt Date: 20210408
  Transmission Date: 20210717
  Serious: Yes (Hospitalization)
  Sender: FDA-Public Use
  Company Number: None

PATIENT
  Age: 70 Year
  Sex: Female

DRUGS (22)
  1. SPIRONOLACTONE. [Concomitant]
     Active Substance: SPIRONOLACTONE
  2. BISOPROLOL [Concomitant]
     Active Substance: BISOPROLOL
  3. AMBRISENTAN 10MG TABLETS 30/BO: 10MG MYLAN [Suspect]
     Active Substance: AMBRISENTAN
     Indication: PULMONARY HYPERTENSION
     Route: 048
     Dates: start: 20150130
  4. LORATADINE. [Concomitant]
     Active Substance: LORATADINE
  5. TYLENOL [Concomitant]
     Active Substance: ACETAMINOPHEN
  6. LEVOTHYROXINE. [Concomitant]
     Active Substance: LEVOTHYROXINE
  7. ALLOPURINOL. [Concomitant]
     Active Substance: ALLOPURINOL
  8. OMEPRAZOLE. [Concomitant]
     Active Substance: OMEPRAZOLE
  9. CINNAMON BARK [Concomitant]
     Active Substance: CINNAMON\HERBALS
  10. TRETINOIN. [Concomitant]
     Active Substance: TRETINOIN
  11. WARFARIN [Concomitant]
     Active Substance: WARFARIN
  12. DILTIAZEM. [Concomitant]
     Active Substance: DILTIAZEM
  13. OCTREOTIDE. [Concomitant]
     Active Substance: OCTREOTIDE
  14. FLUOXETINE [Concomitant]
     Active Substance: FLUOXETINE HYDROCHLORIDE
  15. FUROSEMIDE. [Concomitant]
     Active Substance: FUROSEMIDE
  16. ALVESCO HFA [Concomitant]
  17. CALCIUM CARBONATE?VIT D3 [Concomitant]
  18. ATORVASTATIN [Concomitant]
     Active Substance: ATORVASTATIN
  19. ALBUTEROL HFA [Concomitant]
     Active Substance: ALBUTEROL SULFATE
  20. HUMULIN N [Concomitant]
     Active Substance: INSULIN HUMAN
  21. GLIPIZIDE. [Concomitant]
     Active Substance: GLIPIZIDE
  22. PSYLLIUM SEED POWDER [Concomitant]

REACTIONS (1)
  - Cardiac failure congestive [None]

NARRATIVE: CASE EVENT DATE: 20210405
